FAERS Safety Report 8240190-6 (Version None)
Quarter: 2012Q1

REPORT INFORMATION
  Report Type: 
  Country: None (occurrence: None)
  Receive Date: 20120328
  Receipt Date: 20110812
  Transmission Date: 20120608
  Serious: No
  Sender: FDA-Public Use
  Company Number: US-PFIZER INC-K201100950

PATIENT
  Sex: Male
  Weight: 86.168 kg

DRUGS (7)
  1. PERCOCET [Concomitant]
     Indication: PAIN
     Dosage: 7.5 MG, 4X/DAY
  2. SKELAXIN [Suspect]
     Indication: INTERVERTEBRAL DISC PROTRUSION
     Dosage: 800 MG, 1X/DAY
     Route: 048
     Dates: end: 20110701
  3. BENICAR [Concomitant]
     Indication: BLOOD PRESSURE ABNORMAL
     Dosage: 40 MG, UNK
  4. SULAR [Concomitant]
     Indication: BLOOD PRESSURE ABNORMAL
     Dosage: 24.5 MG, UNK
  5. SKELAXIN [Suspect]
     Indication: NERVE INJURY
  6. SKELAXIN [Suspect]
     Indication: SPINAL COLUMN STENOSIS
  7. ZOLOFT [Concomitant]
     Indication: DEPRESSION
     Dosage: UNK

REACTIONS (3)
  - TREMOR [None]
  - DYSKINESIA [None]
  - MUSCLE SPASMS [None]
